FAERS Safety Report 25280388 (Version 3)
Quarter: 2025Q2

REPORT INFORMATION
  Report Type: Report from Study
  Country: US (occurrence: US)
  Receive Date: 20250507
  Receipt Date: 20250526
  Transmission Date: 20250716
  Serious: Yes (Hospitalization)
  Sender: ABBVIE
  Company Number: US-ABBVIE-6270707

PATIENT
  Age: 69 Year
  Sex: Male

DRUGS (4)
  1. DUOPA [Suspect]
     Active Substance: CARBIDOPA\LEVODOPA
     Indication: Parkinson^s disease
     Route: 050
     Dates: start: 20240320
  2. DUOPA [Suspect]
     Active Substance: CARBIDOPA\LEVODOPA
  3. WELLBUTRIN [Concomitant]
     Active Substance: BUPROPION HYDROCHLORIDE
     Indication: Parkinson^s disease
  4. PRAMIPEXOLE [Concomitant]
     Active Substance: PRAMIPEXOLE
     Indication: Parkinson^s disease

REACTIONS (8)
  - Nephrolithiasis [Recovered/Resolved]
  - Emotional distress [Unknown]
  - Dyskinesia [Not Recovered/Not Resolved]
  - Depression [Not Recovered/Not Resolved]
  - Fall [Recovered/Resolved]
  - Syncope [Recovered/Resolved]
  - Musculoskeletal stiffness [Not Recovered/Not Resolved]
  - Parkinson^s disease [Unknown]

NARRATIVE: CASE EVENT DATE: 20240401
